FAERS Safety Report 10010624 (Version 2)
Quarter: 2014Q2

REPORT INFORMATION
  Report Type: Spontaneous
  Country: PE (occurrence: PE)
  Receive Date: 20140314
  Receipt Date: 20140425
  Transmission Date: 20141212
  Serious: Yes (Other)
  Sender: FDA-Public Use
  Company Number: PE-AMGEN-PERSP2014018172

PATIENT
  Age: 57 Year
  Sex: Female

DRUGS (1)
  1. PROLIA [Suspect]
     Indication: OSTEOPOROSIS
     Dosage: 60 MG, Q6MO
     Route: 065
     Dates: start: 20121005

REACTIONS (5)
  - Tooth abscess [Unknown]
  - Toothache [Unknown]
  - Endodontic procedure [Unknown]
  - Surgery [Recovering/Resolving]
  - Osteonecrosis of jaw [Unknown]
